FAERS Safety Report 11854778 (Version 7)
Quarter: 2016Q3

REPORT INFORMATION
  Report Type: Spontaneous
  Country: GB (occurrence: GB)
  Receive Date: 20151221
  Receipt Date: 20160920
  Transmission Date: 20161109
  Serious: Yes (Life-Threatening, Hospitalization, Other)
  Sender: FDA-Public Use
  Company Number: GB-TEVA-617038ACC

PATIENT
  Age: 52 Year
  Sex: Male

DRUGS (31)
  1. AMLODIPINE BESILATE [Suspect]
     Active Substance: AMLODIPINE BESYLATE
     Dosage: 20 DF, SINGLE
     Route: 065
     Dates: start: 20141201, end: 20141201
  2. PARACETAMOL [Suspect]
     Active Substance: ACETAMINOPHEN
     Dates: start: 20140510, end: 20140521
  3. AMLODIPINE BESILATE [Suspect]
     Active Substance: AMLODIPINE BESYLATE
     Dosage: UNK
     Route: 065
  4. FLUOXETINE [Suspect]
     Active Substance: FLUOXETINE HYDROCHLORIDE
     Indication: DEPRESSION
     Route: 048
     Dates: start: 20120813
  5. IBUPROFEN. [Suspect]
     Active Substance: IBUPROFEN
     Dosage: 16 DF, SINGLE
     Route: 065
     Dates: start: 20141201, end: 20141201
  6. IBUPROFEN. [Suspect]
     Active Substance: IBUPROFEN
     Dosage: UNK
     Route: 065
     Dates: start: 20141119
  7. CO-AMOXICLAV [Concomitant]
     Active Substance: AMOXICILLIN\CLAVULANIC ACID
     Dosage: 1200MG TDS
     Route: 042
     Dates: start: 20140416, end: 20140418
  8. CO-AMOXICLAV [Concomitant]
     Active Substance: AMOXICILLIN\CLAVULANIC ACID
     Dosage: 625MG TDS
     Route: 048
     Dates: start: 20140418, end: 20140423
  9. ASPIRIN. [Suspect]
     Active Substance: ASPIRIN
     Dosage: 48 DF, SINGLE
     Route: 065
     Dates: start: 20141201, end: 20141201
  10. ASPIRIN. [Suspect]
     Active Substance: ASPIRIN
     Route: 065
     Dates: start: 20131008, end: 20141201
  11. IBUPROFEN. [Suspect]
     Active Substance: IBUPROFEN
     Dosage: STRENGTH : 200 MG
     Route: 065
     Dates: start: 20141201, end: 20141201
  12. ATORVASTATIN [Concomitant]
     Active Substance: ATORVASTATIN
     Dosage: UNK
     Dates: start: 20140110, end: 20140330
  13. TRAMADOL. [Concomitant]
     Active Substance: TRAMADOL
     Dosage: TRAMADOL 50-100MG ORAL Q4H PRN
     Dates: start: 20140416
  14. AMLODIPINE BESILATE [Suspect]
     Active Substance: AMLODIPINE BESYLATE
     Route: 065
     Dates: start: 20101001
  15. BISOPROLOL FUMARATE. [Suspect]
     Active Substance: BISOPROLOL FUMARATE
     Route: 065
  16. BISOPROLOL FUMARATE. [Suspect]
     Active Substance: BISOPROLOL FUMARATE
     Dosage: 16 DF, SINGLE
     Route: 065
     Dates: start: 20141201, end: 20141201
  17. RAMIPRIL. [Suspect]
     Active Substance: RAMIPRIL
     Dosage: STRENGTH : 2.5 MG
     Route: 065
     Dates: start: 20131010, end: 20141201
  18. PARACETAMOL [Suspect]
     Active Substance: ACETAMINOPHEN
     Dates: start: 20140510, end: 20140510
  19. CLOPIDOGREL [Concomitant]
     Active Substance: CLOPIDOGREL BISULFATE
     Dosage: UNK
     Dates: start: 20131008
  20. CLOPIDOGREL BISULFATE. [Suspect]
     Active Substance: CLOPIDOGREL BISULFATE
     Dates: start: 20131008
  21. RAMIPRIL. [Suspect]
     Active Substance: RAMIPRIL
     Route: 065
     Dates: start: 20131010
  22. RAMIPRIL. [Suspect]
     Active Substance: RAMIPRIL
     Dosage: 56 DF, SINGLE
     Route: 065
     Dates: start: 20141201, end: 20141201
  23. ASPIRIN. [Suspect]
     Active Substance: ASPIRIN
     Route: 065
     Dates: start: 20131008
  24. FLUOXETINE [Suspect]
     Active Substance: FLUOXETINE HYDROCHLORIDE
     Indication: DEPRESSION
     Route: 048
     Dates: start: 20141201, end: 20141217
  25. FLUOXETINE [Suspect]
     Active Substance: FLUOXETINE HYDROCHLORIDE
     Indication: DEPRESSION
     Dosage: 20 DF, SINGLE
     Route: 048
     Dates: start: 20141201, end: 20141217
  26. CODEINE PHOSPHATE [Concomitant]
     Active Substance: CODEINE PHOSPHATE
     Dosage: QDS PRN
     Route: 048
     Dates: start: 20140416
  27. GLYCERYL TRINITRATE [Concomitant]
     Active Substance: NITROGLYCERIN
     Dosage: UNK
     Dates: start: 20131008
  28. BISOPROLOL FUMARATE. [Suspect]
     Active Substance: BISOPROLOL FUMARATE
     Dosage: UNK
     Route: 065
     Dates: start: 20131008
  29. ANADIN [Suspect]
     Active Substance: IBUPROFEN
     Dosage: DOSE IS 200MG X 16
  30. ATORVASTATIN [Concomitant]
     Active Substance: ATORVASTATIN
     Dates: start: 20131008, end: 20131219
  31. GLUCAGON. [Concomitant]
     Active Substance: GLUCAGON
     Dosage: 5 MG INFUSION
     Route: 042
     Dates: start: 20141201, end: 20141201

REACTIONS (7)
  - Vomiting [Recovered/Resolved]
  - Suicide attempt [Recovered/Resolved]
  - Hypotension [Recovered/Resolved]
  - Bradycardia [Recovered/Resolved]
  - Depressed mood [Not Recovered/Not Resolved]
  - Syncope [Recovered/Resolved]
  - Intentional overdose [Recovered/Resolved]

NARRATIVE: CASE EVENT DATE: 20141201
